FAERS Safety Report 4273499-1 (Version None)
Quarter: 2004Q1

REPORT INFORMATION
  Report Type: 
  Country: None (occurrence: None)
  Receive Date: 20040119
  Receipt Date: 20040105
  Transmission Date: 20041129
  Serious: Yes (Hospitalization, Other)
  Sender: FDA-Public Use
  Company Number: FR-GLAXOSMITHKLINE-B0318763A

PATIENT
  Age: 45 Year
  Sex: Male
  Weight: 69 kg

DRUGS (9)
  1. SERETIDE [Suspect]
     Indication: ASTHMA
     Route: 055
     Dates: start: 20030821
  2. SINGULAIR [Suspect]
     Indication: ASTHMA
     Route: 048
     Dates: start: 20030821, end: 20031026
  3. AUGMENTIN [Concomitant]
     Route: 048
  4. BRICANYL [Concomitant]
     Indication: ASTHMA
     Route: 055
     Dates: start: 20030601
  5. LOMUSOL [Concomitant]
     Indication: HYPERSENSITIVITY
     Route: 045
     Dates: start: 20030922
  6. NASONEX [Concomitant]
     Indication: HYPERSENSITIVITY
     Route: 045
     Dates: start: 20030922
  7. MAGNE-B6 [Concomitant]
     Route: 048
     Dates: start: 20030922
  8. VITAMINE C [Concomitant]
     Route: 048
     Dates: start: 20030922
  9. DIPROSONE [Concomitant]
     Route: 050
     Dates: start: 20031107

REACTIONS (3)
  - EOSINOPHILIA [None]
  - EOSINOPHILIC CELLULITIS [None]
  - RASH [None]
